FAERS Safety Report 20076528 (Version 2)
Quarter: 2022Q1

REPORT INFORMATION
  Report Type: Report from Study
  Country: GB (occurrence: GB)
  Receive Date: 20211116
  Receipt Date: 20220106
  Transmission Date: 20220424
  Serious: Yes (Other)
  Sender: FDA-Public Use
  Company Number: GB-NOVARTISPH-NVSC2021GB256524

PATIENT
  Age: 69 Year
  Sex: Female

DRUGS (1)
  1. RIBOCICLIB [Suspect]
     Active Substance: RIBOCICLIB
     Indication: Breast cancer
     Dosage: UNK UNK, QD
     Route: 048
     Dates: start: 20191114

REACTIONS (5)
  - Hypertension [Unknown]
  - Catarrh [Unknown]
  - Oropharyngeal pain [Unknown]
  - Cough [Unknown]
  - Injection site rash [Unknown]
